FAERS Safety Report 7581897-3 (Version None)
Quarter: 2011Q2

REPORT INFORMATION
  Report Type: 
  Country: None (occurrence: None)
  Receive Date: 20110629
  Receipt Date: 20101217
  Transmission Date: 20111010
  Serious: Yes (Hospitalization)
  Sender: FDA-Public Use
  Company Number: PHHY2010TW90371

PATIENT

DRUGS (1)
  1. EXJADE [Suspect]

REACTIONS (6)
  - DIZZINESS [None]
  - VERTIGO [None]
  - GAIT DISTURBANCE [None]
  - EAR INJURY [None]
  - VOMITING [None]
  - NAUSEA [None]
